FAERS Safety Report 10341319 (Version 2)
Quarter: 2014Q3

REPORT INFORMATION
  Report Type: Spontaneous
  Country: IT (occurrence: IT)
  Receive Date: 20140725
  Receipt Date: 20140730
  Transmission Date: 20150326
  Serious: Yes (Other)
  Sender: FDA-Public Use
  Company Number: IT-UCBSA-2014006000

PATIENT
  Age: 81 Year
  Sex: Female

DRUGS (8)
  1. KEPPRA [Suspect]
     Active Substance: LEVETIRACETAM
     Indication: EPILEPSY
     Dosage: 1000 MG, ONCE DAILY (QD)
     Route: 048
     Dates: start: 20140709, end: 20140711
  2. ANTRA [Concomitant]
     Active Substance: OMEPRAZOLE
     Dosage: 20 MG, UNKNOWN FREQUENCY (ANTRA 20 MG STRENGTH )
     Route: 048
  3. CARDIOASPIRIN [Concomitant]
     Active Substance: ASPIRIN
     Dosage: 100 MG, UNKNOWN FREQUENCY
     Route: 048
  4. CLEXANE DUO [Concomitant]
     Dosage: 8000 IU, UNKNOWN FREQUENCY(CLEXANE 4000 UI STRENGHT)
  5. ENAPREN [Concomitant]
     Active Substance: ENALAPRIL MALEATE
     Dosage: 5 MG, UNKNOWN FREQUENCY (ENAPREN 5 MG TAB)
     Route: 048
  6. LEVOXACIN [Concomitant]
     Active Substance: LEVOFLOXACIN
     Dosage: 500 MG, UNKNOWN FREQUENCY (LEVOXACIN 250 MG STRGENTH)
     Route: 048
  7. TORVAST [Concomitant]
     Active Substance: ATORVASTATIN
     Dosage: 20 MG, UNKNOWN FREQUENCY ( 20 MG STRENGHT)
     Route: 048
  8. PLAVIX [Concomitant]
     Active Substance: CLOPIDOGREL BISULFATE
     Dosage: 75 MG, UNKNOWN FREQUENCY (PLAVIX 75MG STRENGTH)
     Route: 048

REACTIONS (3)
  - Dissociation [Recovered/Resolved]
  - Delusion [Recovered/Resolved]
  - Aggression [Recovered/Resolved]

NARRATIVE: CASE EVENT DATE: 20140709
